FAERS Safety Report 8417882-9 (Version None)
Quarter: 2012Q2

REPORT INFORMATION
  Report Type: 
  Country: None (occurrence: None)
  Receive Date: 20120607
  Receipt Date: 20120602
  Transmission Date: 20120825
  Serious: No
  Sender: FDA-Public Use
  Company Number: US-PFIZER INC-2012132754

PATIENT
  Sex: Female

DRUGS (8)
  1. AMLODIPINE BESYLATE [Suspect]
     Indication: HYPERTENSION
     Dosage: 5 MG, UNK
     Dates: start: 20120601
  2. VICODIN [Concomitant]
     Indication: INTERVERTEBRAL DISC PROTRUSION
     Dosage: UNK
  3. CORTISONE [Concomitant]
     Indication: BACK PAIN
  4. VICODIN [Concomitant]
     Indication: BACK PAIN
  5. KENALOG [Concomitant]
     Indication: BACK PAIN
  6. AMLODIPINE BESYLATE [Suspect]
     Dosage: UNK
  7. KENALOG [Concomitant]
     Indication: INTERVERTEBRAL DISC PROTRUSION
     Dosage: 40 MG, UNK
  8. CORTISONE [Concomitant]
     Indication: INTERVERTEBRAL DISC PROTRUSION
     Dosage: UNK

REACTIONS (2)
  - PAIN IN EXTREMITY [None]
  - INSOMNIA [None]
